FAERS Safety Report 10982708 (Version 1)
Quarter: 2015Q2

REPORT INFORMATION
  Report Type: Spontaneous
  Country: US (occurrence: None)
  Receive Date: 20150402
  Receipt Date: 20150402
  Transmission Date: 20150821
  Serious: Yes (Life-Threatening)
  Sender: FDA-Public Use
  Company Number: None

PATIENT
  Age: 34 Year
  Sex: Female

DRUGS (1)
  1. BELVIQ [Suspect]
     Active Substance: LORCASERIN HYDROCHLORIDE
     Indication: WEIGHT CONTROL
     Dosage: TAKEN BY MOUTH, 1 TABLET
     Dates: start: 20150316, end: 20150316

REACTIONS (21)
  - Restlessness [None]
  - Fall [None]
  - Body temperature increased [None]
  - Malaise [None]
  - Face injury [None]
  - Head injury [None]
  - Peripheral coldness [None]
  - Dizziness [None]
  - Formication [None]
  - Headache [None]
  - Swollen tongue [None]
  - Neck pain [None]
  - Heart rate increased [None]
  - Nausea [None]
  - Dysphonia [None]
  - Hyperhidrosis [None]
  - Feeling hot [None]
  - Muscle spasms [None]
  - Vomiting [None]
  - Screaming [None]
  - Blood pressure increased [None]

NARRATIVE: CASE EVENT DATE: 20150316
